FAERS Safety Report 8826370 (Version 3)
Quarter: 2013Q1

REPORT INFORMATION
  Report Type: Report from Study
  Country: US (occurrence: US)
  Receive Date: 20121005
  Receipt Date: 20130328
  Transmission Date: 20140127
  Serious: Yes (Other)
  Sender: FDA-Public Use
  Company Number: US-CELGENEUS-163-C5013-12093404

PATIENT
  Age: 70 Year
  Sex: Female
  Weight: 44.5 kg

DRUGS (42)
  1. CC-5013 [Suspect]
     Indication: CHRONIC LYMPHOCYTIC LEUKAEMIA
     Dosage: DOSE LEVEL 0
     Route: 048
     Dates: start: 20110802
  2. CC-5013 [Suspect]
     Dosage: DOSE LEVEL -1
     Route: 048
     Dates: start: 20110829
  3. CC-5013 [Suspect]
     Dosage: DOSE LEVEL -2
     Route: 048
     Dates: start: 20110906, end: 20110929
  4. PROTONIX [Concomitant]
     Indication: PROPHYLAXIS
     Dosage: 40 MILLIGRAM
     Route: 048
     Dates: start: 20110810
  5. VALTREX [Concomitant]
     Indication: ANTIVIRAL PROPHYLAXIS
     Dosage: 500 MILLIGRAM
     Route: 048
     Dates: start: 20080421
  6. CALCIUM [Concomitant]
     Indication: SUPPLEMENTATION THERAPY
     Dosage: 1200 MILLIGRAM
     Route: 048
     Dates: start: 1994
  7. MULTIVITAMINS [Concomitant]
     Indication: SUPPLEMENTATION THERAPY
     Dosage: 1 TABLET
     Route: 048
     Dates: start: 1994
  8. SIMVASTATIN [Concomitant]
     Indication: DYSLIPIDAEMIA
     Dosage: 1 TABLET
     Route: 048
     Dates: start: 2007
  9. COLACE [Concomitant]
     Indication: CONSTIPATION PROPHYLAXIS
     Dosage: 100 MILLIGRAM
     Route: 048
     Dates: start: 20110808
  10. AZITHROMYCIN [Concomitant]
     Indication: OROPHARYNGEAL PAIN
     Dosage: 500 MILLIGRAM
     Route: 048
     Dates: start: 20110801, end: 20110801
  11. AZITHROMYCIN [Concomitant]
     Dosage: 250 MILLIGRAM
     Route: 048
     Dates: start: 20110802, end: 20110805
  12. ASA [Concomitant]
     Indication: PROPHYLAXIS
     Dosage: 81 MILLIGRAM
     Route: 048
     Dates: start: 20110801, end: 20110811
  13. ASA [Concomitant]
     Dosage: 81 MILLIGRAM
     Route: 048
     Dates: start: 20110826, end: 20110929
  14. ALLOPURINOL [Concomitant]
     Indication: PROPHYLAXIS
     Dosage: 300 MILLIGRAM
     Route: 048
     Dates: start: 20110730, end: 20110811
  15. ALLOPURINOL [Concomitant]
     Dosage: 100 MILLIGRAM
     Route: 048
     Dates: start: 20110826, end: 20110929
  16. NORCO [Concomitant]
     Indication: PAIN
     Dosage: 5-325MG
     Route: 048
     Dates: start: 20110805, end: 20110811
  17. MORPHINE [Concomitant]
     Indication: PAIN
     Dosage: 2 MILLIGRAM
     Route: 041
     Dates: start: 20110807, end: 20110807
  18. MORPHINE [Concomitant]
     Dosage: 4MG/ML
     Route: 041
     Dates: start: 20110808, end: 20110809
  19. MORPHINE [Concomitant]
     Dosage: 36 MILLIGRAM
     Route: 041
     Dates: start: 20110810
  20. MORPHINE [Concomitant]
     Dosage: 2 MILLIGRAM
     Route: 041
     Dates: start: 20110812, end: 20110812
  21. MORPHINE [Concomitant]
     Dosage: 60 MILLIGRAM
     Route: 048
     Dates: start: 20110812, end: 20110815
  22. PREDNISONE [Concomitant]
     Indication: PAIN
     Dosage: 20 MILLIGRAM
     Route: 048
     Dates: start: 20110809, end: 20110812
  23. PREDNISONE [Concomitant]
     Dosage: 10 MILLIGRAM
     Route: 048
     Dates: start: 20110813, end: 20110815
  24. PREDNISONE [Concomitant]
     Dosage: 20 MILLIGRAM
     Route: 048
     Dates: start: 20110815, end: 20110829
  25. ULTRAM [Concomitant]
     Indication: PAIN
     Dosage: 100 MILLIGRAM
     Route: 048
     Dates: start: 20110809, end: 20110810
  26. ULTRAM [Concomitant]
     Dosage: 100 MILLIGRAM
     Route: 048
     Dates: start: 20110811, end: 20110914
  27. MIRALAX [Concomitant]
     Indication: CONSTIPATION
     Dosage: 51 GRAM
     Route: 048
     Dates: start: 20110809, end: 20110906
  28. MYLICON [Concomitant]
     Indication: CONSTIPATION
     Dosage: 240 MILLIGRAM
     Route: 048
     Dates: start: 20110809, end: 20110906
  29. PEPCID [Concomitant]
     Indication: DYSPEPSIA
     Dosage: 20 MILLIGRAM
     Route: 048
     Dates: start: 20110809, end: 20110810
  30. SENOKOT-S [Concomitant]
     Indication: CONSTIPATION
     Dosage: 4 TABLET
     Route: 048
     Dates: start: 20110809, end: 20110828
  31. IMMUNE GLOBULINE [Concomitant]
     Indication: IMMUNE SYSTEM DISORDER
     Dosage: 45 GRAM
     Route: 041
     Dates: start: 20110812, end: 20110812
  32. TYLENOL [Concomitant]
     Indication: PROPHYLAXIS
     Dosage: 1000 MILLIGRAM
     Route: 048
     Dates: start: 20110901, end: 20110901
  33. TYLENOL [Concomitant]
     Indication: CHILLS
  34. BENADRYL [Concomitant]
     Indication: PROPHYLAXIS
     Dosage: 25 MILLIGRAM
     Route: 048
     Dates: start: 20110812, end: 20110812
  35. HYDROCORTISONE [Concomitant]
     Indication: PROPHYLAXIS
     Dosage: 100 MILLIGRAM
     Route: 041
     Dates: start: 20110812, end: 20110812
  36. OXYCOTIN [Concomitant]
     Indication: PAIN
     Dosage: 40 MILLIGRAM
     Route: 041
     Dates: start: 20110815, end: 20110926
  37. ARANESP [Concomitant]
     Indication: ANAEMIA
     Dosage: 200 MILLIGRAM
     Route: 041
     Dates: start: 20110829, end: 20110829
  38. ZOFRAN [Concomitant]
     Indication: PROPHYLAXIS
     Dosage: 24 MILLIGRAM
     Route: 041
     Dates: start: 20110901, end: 20110901
  39. CEFEPIME [Concomitant]
     Indication: PYREXIA
     Dosage: 2 GRAM
     Route: 041
     Dates: start: 20110901, end: 20110902
  40. LEVAQUIN [Concomitant]
     Indication: PROPHYLAXIS
     Dosage: 500 MILLIGRAM
     Route: 048
     Dates: start: 20110902, end: 20110908
  41. K-DUR [Concomitant]
     Indication: HYPOKALAEMIA
     Dosage: 20 MILLIEQUIVALENTS
     Route: 048
     Dates: start: 20110803, end: 20110926
  42. NORMAL SALINE [Concomitant]
     Indication: HYPOTENSION
     Dosage: 4 LITERS
     Route: 041
     Dates: start: 20110901, end: 20110902

REACTIONS (1)
  - Peripheral T-cell lymphoma unspecified [Unknown]
